FAERS Safety Report 23242095 (Version 1)
Quarter: 2023Q4

REPORT INFORMATION
  Report Type: Spontaneous
  Country: US (occurrence: None)
  Receive Date: 20231129
  Receipt Date: 20231129
  Transmission Date: 20240110
  Serious: Yes (Hospitalization)
  Sender: FDA-Public Use
  Company Number: None

PATIENT
  Age: 54 Year
  Sex: Female

DRUGS (4)
  1. KEVZARA [Suspect]
     Active Substance: SARILUMAB
     Indication: Rheumatoid arthritis
     Dosage: 150MG EVERY 2 WEEKS SUBCUTANEOUS
     Route: 058
     Dates: start: 20230807
  2. AMLODIPINA 10MG [Concomitant]
     Dates: start: 20231101
  3. HYDROXYCHLORQUINA 200MG [Concomitant]
     Dates: start: 20220929
  4. PRADNISON [Concomitant]
     Dates: start: 20221020

REACTIONS (1)
  - Oedema peripheral [None]

NARRATIVE: CASE EVENT DATE: 20231121
